FAERS Safety Report 7017101 (Version 7)
Quarter: 2013Q4

REPORT INFORMATION
  Report Type: Spontaneous
  Country: US (occurrence: US)
  Receive Date: 20090611
  Receipt Date: 20131125
  Transmission Date: 20140711
  Serious: Yes (Other)
  Sender: FDA-Public Use
  Company Number: US-BAYER-200922359NA

PATIENT
  Age: 23 Year
  Sex: Female
  Weight: 58 kg

DRUGS (7)
  1. YAZ [Suspect]
     Indication: CONTRACEPTION
     Dosage: 1 DF (DAILY DOSE), QD, ORAL
     Route: 048
     Dates: start: 20060930, end: 200801
  2. NEXIUM [Concomitant]
     Indication: UNEVALUABLE EVENT
     Dosage: 40 MG, UNK
     Route: 065
  3. ALLEGRA-D [Concomitant]
     Indication: HYPERSENSITIVITY
     Dosage: UNK UNK, BID
     Route: 065
  4. LIDOCAINE [Concomitant]
     Indication: PRODUCT USED FOR UNKNOWN INDICATION
     Route: 065
  5. NAPROXEN [Concomitant]
     Indication: PRODUCT USED FOR UNKNOWN INDICATION
     Route: 065
  6. CELEXA [Concomitant]
     Indication: SLEEP DISORDER
     Dosage: DAILY DOSE 20 MG
     Route: 065
  7. SINGULAIR [Concomitant]
     Dosage: 10 MG, UNK

REACTIONS (12)
  - Gallbladder disorder [None]
  - Cholecystitis chronic [None]
  - Injury [None]
  - Pain [None]
  - Anxiety [None]
  - Abnormal loss of weight [None]
  - Malaise [None]
  - Gastrooesophageal reflux disease [None]
  - Vomiting [None]
  - Diarrhoea [None]
  - Skin striae [None]
  - Scar [None]
